FAERS Safety Report 9948981 (Version 4)
Quarter: 2015Q1

REPORT INFORMATION
  Report Type: Not Available
  Country: SE (occurrence: SE)
  Receive Date: 20140304
  Receipt Date: 20150323
  Transmission Date: 20150721
  Serious: Yes (Life-Threatening)
  Sender: FDA-Public Use
  Company Number: SE-BEH-2014040893

PATIENT
  Age: 62 Year
  Sex: Female

DRUGS (19)
  1. PRIVIGEN [Suspect]
     Active Substance: HUMAN IMMUNOGLOBULIN G
     Indication: CUTANEOUS VASCULITIS
     Dates: start: 20140128
  2. ENALAPRIL SANDOZ 20 MG TABLET [Concomitant]
     Indication: HYPERTENSION
     Route: 048
     Dates: start: 20120718
  3. ALVEDON 500 MG FILM-COATED TABLET [Concomitant]
     Indication: SYSTEMIC LUPUS ERYTHEMATOSUS
     Dosage: BEFORE 2010
     Route: 048
  4. CETIRIZIN ACTAVIS 10 MG FILM-COATED TABLET [Concomitant]
  5. ASPIRIN 500 MG TABLET [Concomitant]
  6. KETOGAN NOVUM 5 MG TABLET [Concomitant]
     Indication: PAIN
     Route: 048
     Dates: start: 20101214
  7. KETOGAN NOVUM 5 MG TABLET [Concomitant]
     Indication: PAIN
     Route: 048
     Dates: start: 20101214
  8. GABAPENTIN ACTAVIS 400 MG CAPSULE, HARD [Concomitant]
     Indication: PAIN
     Dosage: BEFORE 2010
     Route: 048
  9. OMEPRAZOL ACTAVIS 20 MG GASTRO-RESISTANT CAPSULE, HARD [Concomitant]
     Indication: PROPHYLAXIS
     Route: 048
     Dates: start: 20111124
  10. PHENAZONE [Concomitant]
     Active Substance: ANTIPYRINE
  11. CHOLECALCIFEROL 20000 IE/ML ORAL DROPS, SOLUTION [Concomitant]
     Indication: CALCINOSIS
     Route: 048
     Dates: start: 20130426
  12. ZOPICLON STADA 7.5 MG FILM-COATED TABLET [Concomitant]
     Indication: SLEEP DISORDER
     Route: 048
  13. MOMETASONE [Concomitant]
     Active Substance: MOMETASONE
  14. PRIVIGEN [Suspect]
     Active Substance: HUMAN IMMUNOGLOBULIN G
     Dosage: START DATE: SINCE 2011
     Route: 042
     Dates: start: 2011
  15. GABAPENTIN ACTAVIS 400 MG CAPSULE, HARD [Concomitant]
     Indication: SYSTEMIC LUPUS ERYTHEMATOSUS
     Dosage: BEFORE 2010
     Route: 048
  16. CARDIZEM [Concomitant]
     Active Substance: DILTIAZEM HYDROCHLORIDE
     Indication: CALCINOSIS
     Route: 048
     Dates: start: 20130328
  17. PREDNISOLON PFIZER 5 MG TABLET [Concomitant]
     Indication: SYSTEMIC LUPUS ERYTHEMATOSUS
     Dosage: SINCE 1973
     Route: 048
  18. TERRACORTRIL WITH POLYMOXIN B EYE/EAR DROPS, SUSPENSION [Concomitant]
  19. HEPARIN LEO 100 IE/ML SOLUTION FOR INJECTION [Concomitant]

REACTIONS (23)
  - Hunger [Recovered/Resolved]
  - Swelling face [Recovered/Resolved]
  - Pruritus [Recovered/Resolved]
  - Angioedema [Recovered/Resolved]
  - Tachycardia [Recovered/Resolved]
  - Respiratory arrest [Recovered/Resolved]
  - Type I hypersensitivity [Recovered/Resolved]
  - Rash [Recovered/Resolved]
  - Pruritus generalised [Recovered/Resolved]
  - Urticaria [Recovered/Resolved]
  - Dizziness [Recovered/Resolved]
  - Wheezing [Recovered/Resolved]
  - Muscle spasms [Recovered/Resolved]
  - Anaphylactic reaction [Recovered/Resolved]
  - Syncope [Recovered/Resolved]
  - Paraesthesia oral [Recovered/Resolved]
  - Dyspnoea [Recovered/Resolved]
  - Unresponsive to stimuli [Recovered/Resolved]
  - Cyanosis [Recovered/Resolved]
  - Flushing [Recovered/Resolved]
  - Pharyngeal oedema [Recovered/Resolved]
  - Pruritus [Recovered/Resolved]
  - Rash [Recovered/Resolved]

NARRATIVE: CASE EVENT DATE: 201312
